FAERS Safety Report 25111688 (Version 2)
Quarter: 2025Q2

REPORT INFORMATION
  Report Type: Report from Study
  Country: ES (occurrence: ES)
  Receive Date: 20250324
  Receipt Date: 20250428
  Transmission Date: 20250717
  Serious: Yes (Other)
  Sender: ORGANON
  Company Number: ES-ABBVIE-6127839

PATIENT
  Age: 70 Year
  Sex: Female

DRUGS (4)
  1. SINEMET [Suspect]
     Active Substance: CARBIDOPA\LEVODOPA
     Indication: Product used for unknown indication
  2. CARBIDOPA\LEVODOPA [Suspect]
     Active Substance: CARBIDOPA\LEVODOPA
     Indication: Parkinson^s disease
  3. CARBIDOPA\LEVODOPA [Suspect]
     Active Substance: CARBIDOPA\LEVODOPA
     Dates: start: 20190305
  4. BROMAZEPAM [Suspect]
     Active Substance: BROMAZEPAM
     Indication: Product used for unknown indication

REACTIONS (11)
  - Drug abuse [Unknown]
  - Anxiety [Recovering/Resolving]
  - Amnesia [Not Recovered/Not Resolved]
  - Nausea [Recovered/Resolved]
  - Dyskinesia [Not Recovered/Not Resolved]
  - Hypophagia [Recovering/Resolving]
  - Distractibility [Not Recovered/Not Resolved]
  - Confusional state [Unknown]
  - Stoma site infection [Not Recovered/Not Resolved]
  - Cognitive disorder [Not Recovered/Not Resolved]
  - Product lot number issue [Unknown]

NARRATIVE: CASE EVENT DATE: 20240101
